FAERS Safety Report 7516252-5 (Version None)
Quarter: 2011Q2

REPORT INFORMATION
  Report Type: 
  Country: None (occurrence: None)
  Receive Date: 20110601
  Receipt Date: 20110523
  Transmission Date: 20111010
  Serious: Yes (Other)
  Sender: FDA-Public Use
  Company Number: FR-ELI_LILLY_AND_COMPANY-FR201102002802

PATIENT
  Sex: Male
  Weight: 118 kg

DRUGS (4)
  1. METFORMIN HCL [Concomitant]
     Indication: DIABETES MELLITUS
     Dates: start: 20040101
  2. ATORVASTATIN [Concomitant]
     Indication: HYPERCHOLESTEROLAEMIA
     Dates: start: 20040101
  3. EXENATIDE [Suspect]
     Indication: DIABETES MELLITUS
     Dosage: 20 UG, DAILY (1/D)
     Route: 058
     Dates: start: 20090612
  4. AMARYL [Concomitant]
     Indication: DIABETES MELLITUS
     Dates: start: 20040101

REACTIONS (1)
  - CHOROID MELANOMA [None]
